FAERS Safety Report 7268824-3 (Version None)
Quarter: 2011Q1

REPORT INFORMATION
  Report Type: 
  Country: None (occurrence: None)
  Receive Date: 20110201
  Receipt Date: 20110128
  Transmission Date: 20110831
  Serious: Yes (Other)
  Sender: FDA-Public Use
  Company Number: GB-PFIZER INC-2011022625

PATIENT
  Age: 31 Year
  Sex: Male

DRUGS (3)
  1. CLENIL [Concomitant]
     Indication: ASTHMA
  2. SALBUTAMOL [Concomitant]
  3. CHAMPIX [Suspect]
     Indication: SMOKING CESSATION THERAPY

REACTIONS (2)
  - HYPERSOMNIA [None]
  - FATIGUE [None]
